FAERS Safety Report 5527241-4 (Version None)
Quarter: 2007Q4

REPORT INFORMATION
  Report Type: 
  Country: None (occurrence: None)
  Receive Date: 20071121
  Receipt Date: 20071112
  Transmission Date: 20080405
  Serious: Yes (Other)
  Sender: FDA-Public Use
  Company Number: 2007335190

PATIENT
  Age: 8 Year
  Sex: Male
  Weight: 19.0511 kg

DRUGS (2)
  1. LUBRIDERM SHEA/COCOA BUTTER (NO ACTIVE INGREDIENT) [Suspect]
     Indication: DRY SKIN
     Dosage: 21 /2 TABLESPOON ONCE, TOPICAL
     Route: 061
     Dates: start: 20071110, end: 20071110
  2. PREDISONE (PREDNISONE) [Concomitant]

REACTIONS (1)
  - DRUG HYPERSENSITIVITY [None]
